FAERS Safety Report 16598899 (Version 1)
Quarter: 2019Q3

REPORT INFORMATION
  Report Type: Spontaneous
  Country: US (occurrence: US)
  Receive Date: 20190719
  Receipt Date: 20190719
  Transmission Date: 20191004
  Serious: Yes (Other)
  Sender: FDA-Public Use
  Company Number: US-B.I. PHARMACEUTICALS,INC./RIDGEFIELD-2019-US-000586

PATIENT
  Age: 69 Year
  Sex: Female

DRUGS (1)
  1. PRADAXA [Suspect]
     Active Substance: DABIGATRAN ETEXILATE MESYLATE
     Indication: ATRIAL FIBRILLATION
     Dosage: 150 MG CAPSULES BID
     Route: 065
     Dates: start: 201012

REACTIONS (7)
  - Bite [Not Recovered/Not Resolved]
  - Fall [Unknown]
  - Basal cell carcinoma [Not Recovered/Not Resolved]
  - Arthropathy [Unknown]
  - Joint injury [Unknown]
  - Chondropathy [Unknown]
  - Hypoacusis [Unknown]

NARRATIVE: CASE EVENT DATE: 20190711
